FAERS Safety Report 8110733-1 (Version None)
Quarter: 2012Q1

REPORT INFORMATION
  Report Type: 
  Country: None (occurrence: None)
  Receive Date: 20120203
  Receipt Date: 20120131
  Transmission Date: 20120608
  Serious: No
  Sender: FDA-Public Use
  Company Number: US-PFIZER INC-2012027078

PATIENT
  Sex: Female
  Weight: 68.027 kg

DRUGS (6)
  1. CARVEDILOL [Concomitant]
     Indication: HYPERTENSION
     Dosage: 25 MG, 2X/DAY
  2. ARTHROTEC [Suspect]
     Indication: ARTHRITIS
     Dosage: 75 MG, 2X/DAY
     Dates: start: 20110101, end: 20110101
  3. ARTHROTEC [Suspect]
     Indication: PAIN
  4. LASIX [Concomitant]
     Indication: HYPERTENSION
     Dosage: 60 MG, DAILY
  5. POTASSIUM [Concomitant]
     Indication: HYPERTENSION
     Dosage: 30 MG, DAILY
  6. AMLODIPINE [Concomitant]
     Indication: HYPERTENSION
     Dosage: 2.5 MG, DAILY

REACTIONS (2)
  - INCORRECT DOSE ADMINISTERED [None]
  - DIARRHOEA [None]
